FAERS Safety Report 8780423 (Version 1)
Quarter: 2012Q4

REPORT INFORMATION
  Report Type: Spontaneous
  Country: US (occurrence: None)
  Receive Date: 20120905
  Receipt Date: 20120905
  Transmission Date: 20130627
  Serious: Yes (Disabling)
  Sender: FDA-Public Use
  Company Number: None

PATIENT
  Age: 59 Year
  Sex: Female

DRUGS (2)
  1. FLAGYL [Suspect]
     Indication: C.DIFFICILE DIARRHEA
     Dosage: veinous
     Route: 042
     Dates: start: 20101024, end: 20101030
  2. METRONIDAZOLE [Suspect]
     Dosage: 1 applicator 2x daily
     Route: 067
     Dates: start: 20111105

REACTIONS (1)
  - Hypoaesthesia [None]
